FAERS Safety Report 5854117-5 (Version None)
Quarter: 2008Q3

REPORT INFORMATION
  Report Type: 
  Country: None (occurrence: None)
  Receive Date: 20080822
  Receipt Date: 20080811
  Transmission Date: 20090109
  Serious: Yes (Hospitalization, Other)
  Sender: FDA-Public Use
  Company Number: IT-ROCHE-580972

PATIENT
  Age: 63 Year
  Sex: Male

DRUGS (4)
  1. PEGASYS [Suspect]
     Route: 065
  2. PEGASYS [Suspect]
     Route: 065
  3. RIBAVIRIN [Suspect]
     Route: 065
  4. RIBAVIRIN [Suspect]
     Route: 065

REACTIONS (4)
  - ASTHENIA [None]
  - DENTAL TREATMENT [None]
  - MYOCARDIAL ISCHAEMIA [None]
  - SYNCOPE [None]
